FAERS Safety Report 9135647 (Version 2)
Quarter: 2013Q2

REPORT INFORMATION
  Report Type: Report from Study
  Country: BR (occurrence: BR)
  Receive Date: 20130304
  Receipt Date: 20130510
  Transmission Date: 20140414
  Serious: Yes (Other)
  Sender: FDA-Public Use
  Company Number: PHHY2013BR020336

PATIENT
  Sex: Male

DRUGS (4)
  1. CARBAMAZEPINE [Suspect]
     Indication: ARRHYTHMIA
     Dosage: 1 DF, QD
  2. CARBAMAZEPINE [Suspect]
     Indication: OFF LABEL USE
  3. TEGRETOL [Suspect]
     Indication: ARRHYTHMIA
  4. TEGRETOL [Suspect]
     Indication: OFF LABEL USE

REACTIONS (6)
  - Dengue fever [Recovered/Resolved]
  - Liver disorder [Recovering/Resolving]
  - Syncope [Recovered/Resolved]
  - Arrhythmia [Not Recovered/Not Resolved]
  - Back pain [Recovered/Resolved]
  - Abdominal pain [Recovered/Resolved]
